FAERS Safety Report 4849258-5 (Version None)
Quarter: 2005Q4

REPORT INFORMATION
  Report Type: 
  Country: None (occurrence: None)
  Receive Date: 20051209
  Receipt Date: 20051005
  Transmission Date: 20060501
  Serious: Yes (Hospitalization)
  Sender: FDA-Public Use
  Company Number: CA-MERCK-0510CAN00061

PATIENT
  Age: 55 Year
  Sex: Male
  Weight: 72 kg

DRUGS (21)
  1. VIOXX [Suspect]
     Indication: ARTHRITIS
     Route: 048
     Dates: start: 20010101, end: 20030901
  2. OMEPRAZOLE [Concomitant]
     Route: 065
  3. MEPERIDINE HYDROCHLORIDE [Concomitant]
     Route: 065
  4. ACETAMINOPHEN [Concomitant]
     Route: 065
  5. IBUPROFEN [Concomitant]
     Route: 065
  6. LORAZEPAM [Concomitant]
     Route: 065
  7. CITALOPRAM HYDROBROMIDE [Concomitant]
     Route: 065
  8. FLUTICASONE PROPIONATE [Concomitant]
     Route: 065
  9. LEVOMEPROMAZINE [Concomitant]
     Route: 065
  10. RANITIDINE [Concomitant]
     Route: 065
  11. GABAPENTIN [Concomitant]
     Route: 065
  12. NAPROXEN SODIUM [Concomitant]
     Route: 065
  13. HYDROMORPHONE HYDROCHLORIDE [Concomitant]
     Route: 065
  14. CLONAZEPAM [Concomitant]
     Route: 065
  15. CIPROFLOXACIN HYDROCHLORIDE [Concomitant]
     Route: 065
  16. AZITHROMYCIN [Concomitant]
     Route: 065
  17. FENTANYL [Concomitant]
     Route: 065
  18. QUININE [Concomitant]
     Route: 065
  19. LANSOPRAZOLE [Concomitant]
     Route: 065
  20. VENLAFAXINE HYDROCHLORIDE [Concomitant]
     Route: 065
  21. BETAMETHASONE VALERATE [Concomitant]
     Route: 065

REACTIONS (2)
  - CORONARY ARTERY DISEASE [None]
  - MYOCARDIAL INFARCTION [None]
